FAERS Safety Report 5233916-7 (Version None)
Quarter: 2007Q1

REPORT INFORMATION
  Report Type: 
  Country: None (occurrence: None)
  Receive Date: 20070208
  Receipt Date: 20061031
  Transmission Date: 20070707
  Serious: No
  Sender: FDA-Public Use
  Company Number: US-BRISTOL-MYERS SQUIBB COMPANY-13561105

PATIENT
  Age: 44 Year
  Sex: Female

DRUGS (1)
  1. AZACTAM [Suspect]

REACTIONS (1)
  - TINNITUS [None]
